FAERS Safety Report 9747755 (Version 2)
Quarter: 2014Q1

REPORT INFORMATION
  Report Type: Spontaneous
  Country: US (occurrence: US)
  Receive Date: 20131212
  Receipt Date: 20140101
  Transmission Date: 20141002
  Serious: Yes (Death)
  Sender: FDA-Public Use
  Company Number: US-AMGEN-USASP2013086008

PATIENT
  Age: 81 Year
  Sex: Male
  Weight: 87.98 kg

DRUGS (13)
  1. PROLIA [Suspect]
     Indication: PRODUCT USED FOR UNKNOWN INDICATION
     Dosage: 60 MG, Q6MO
     Route: 058
     Dates: start: 20130606, end: 20130911
  2. AMLODIPIN                          /00972401/ [Concomitant]
     Dosage: 10 MG, QD
     Route: 048
  3. ASPIRIN [Concomitant]
     Dosage: 81 MG, UNK
  4. AZELASTINE HYDROCHLORIDE [Concomitant]
     Dosage: 137 MUG, BID
     Route: 045
  5. BENAZEPRIL HYDROCHLORIDE [Concomitant]
     Dosage: 20 MG, QD
     Route: 048
  6. CALCIUM [Concomitant]
     Dosage: 600 MG, QD
     Route: 048
  7. FLOVENT [Concomitant]
     Dosage: 110 MUG, BID
     Route: 045
  8. NASONEX [Concomitant]
     Dosage: 50 MUG, QD
     Route: 045
  9. PRAVASTATIN SODIUM [Concomitant]
     Dosage: 40 MG, QD
     Route: 048
  10. PROAIR HFA [Concomitant]
     Dosage: 90 MUG, UNK
     Route: 045
  11. SYNTHROID [Concomitant]
     Dosage: 100 MUG, QD
  12. VESICARE [Concomitant]
     Dosage: 10 MG, QD
     Route: 048
     Dates: start: 20130411
  13. VITAMIN D3 [Concomitant]
     Dosage: 400 UNIT, QD
     Route: 048

REACTIONS (1)
  - Death [Fatal]
